FAERS Safety Report 20698712 (Version 2)
Quarter: 2022Q2

REPORT INFORMATION
  Report Type: Spontaneous
  Country: IL (occurrence: IL)
  Receive Date: 20220412
  Receipt Date: 20220614
  Transmission Date: 20220721
  Serious: Yes (Hospitalization)
  Sender: FDA-Public Use
  Company Number: IL-BIOGEN-2022BI01111926

PATIENT
  Age: 19 Year
  Sex: Male

DRUGS (1)
  1. TYSABRI [Suspect]
     Active Substance: NATALIZUMAB
     Indication: Multiple sclerosis
     Route: 065
     Dates: start: 20220307

REACTIONS (10)
  - Oropharyngeal pain [Unknown]
  - Cough [Unknown]
  - Pyrexia [Not Recovered/Not Resolved]
  - Chills [Unknown]
  - Splenomegaly [Unknown]
  - Lymphadenopathy [Unknown]
  - Asthenia [Unknown]
  - Hepatomegaly [Unknown]
  - Renal disorder [Unknown]
  - Scrotal ulcer [Unknown]

NARRATIVE: CASE EVENT DATE: 20220309
